FAERS Safety Report 20126879 (Version 1)
Quarter: 2021Q4

REPORT INFORMATION
  Report Type: Spontaneous
  Country: US (occurrence: US)
  Receive Date: 20211129
  Receipt Date: 20211129
  Transmission Date: 20220303
  Serious: Yes (Hospitalization)
  Sender: FDA-Public Use
  Company Number: US-PFIZER INC-202101584598

PATIENT
  Age: 34 Year
  Sex: Male

DRUGS (1)
  1. HYDROCORTISONE ACETATE [Suspect]
     Active Substance: HYDROCORTISONE ACETATE
     Indication: Dermatitis atopic
     Dosage: 1% (UP TO2.5%) MULTIPLE TIMES DAILY
     Route: 061

REACTIONS (1)
  - Drug withdrawal syndrome [Unknown]
